FAERS Safety Report 20125842 (Version 1)
Quarter: 2021Q4

REPORT INFORMATION
  Report Type: Spontaneous
  Country: CH (occurrence: CH)
  Receive Date: 20211129
  Receipt Date: 20211129
  Transmission Date: 20220303
  Serious: Yes (Life-Threatening, Hospitalization, Other)
  Sender: FDA-Public Use
  Company Number: None

PATIENT
  Age: 14 Year
  Sex: Male
  Weight: 55 kg

DRUGS (3)
  1. MYLOTARG [Suspect]
     Active Substance: GEMTUZUMAB OZOGAMICIN
     Indication: Acute myeloid leukaemia
     Dosage: 7.1 MG
     Route: 041
     Dates: start: 20211018, end: 20211018
  2. CYTARABINE [Suspect]
     Active Substance: CYTARABINE
     Indication: Acute myeloid leukaemia
     Dosage: 3200 MG, DAILY
     Route: 041
     Dates: start: 20211012, end: 20211016
  3. FLUDARABINE [Suspect]
     Active Substance: FLUDARABINE PHOSPHATE
     Indication: Acute myeloid leukaemia
     Dosage: 50 MG, DAILY
     Route: 041
     Dates: start: 20211012, end: 20211016

REACTIONS (5)
  - Venoocclusive liver disease [Recovering/Resolving]
  - Pleural effusion [Recovering/Resolving]
  - Cholestasis [Recovering/Resolving]
  - Hypoalbuminaemia [Recovering/Resolving]
  - Off label use [Unknown]

NARRATIVE: CASE EVENT DATE: 20211018
